FAERS Safety Report 4413223-2 (Version None)
Quarter: 2004Q3

REPORT INFORMATION
  Report Type: 
  Country: None (occurrence: None)
  Receive Date: 20040730
  Receipt Date: 20040730
  Transmission Date: 20050211
  Serious: Yes (Other)
  Sender: FDA-Public Use
  Company Number: None

PATIENT
  Age: 44 Year
  Sex: Female

DRUGS (1)
  1. HEPARIN [Suspect]
     Indication: CHEST PAIN

REACTIONS (17)
  - ABDOMINAL DISTENSION [None]
  - BLOOD CREATININE INCREASED [None]
  - BOWEL SOUNDS ABNORMAL [None]
  - CARDIO-RESPIRATORY ARREST [None]
  - CEREBRAL INFARCTION [None]
  - COMA [None]
  - DRUG LEVEL BELOW THERAPEUTIC [None]
  - ELECTROCARDIOGRAM ST SEGMENT ABNORMAL [None]
  - HAEMATOCRIT DECREASED [None]
  - HAEMATURIA [None]
  - HEMIPARESIS [None]
  - HYPOTENSION [None]
  - HYPOXIA [None]
  - TREATMENT NONCOMPLIANCE [None]
  - TROPONIN INCREASED [None]
  - URINARY BLADDER HAEMORRHAGE [None]
  - URINARY BLADDER RUPTURE [None]
